FAERS Safety Report 10533772 (Version 1)
Quarter: 2014Q4

REPORT INFORMATION
  Report Type: Spontaneous
  Country: US (occurrence: None)
  Receive Date: 20141021
  Receipt Date: 20141021
  Transmission Date: 20150529
  Serious: No
  Sender: FDA-Public Use
  Company Number: None

PATIENT
  Age: 43 Year
  Sex: Female
  Weight: 70.31 kg

DRUGS (2)
  1. NEUTROGENA T/SAL THERAPEUTIC [Suspect]
     Active Substance: SALICYLIC ACID
     Indication: DERMATITIS
     Dosage: ABOUT 1 TABLESPOON WASH
     Dates: start: 20141010, end: 20141017
  2. ALBA NATURAL ACNEDOTE [Suspect]
     Active Substance: SALICYLIC ACID
     Indication: ACNE
     Dosage: FULL BODY WASH PLUS GEL TWICE DAILY
     Dates: start: 20141010, end: 20141017

REACTIONS (13)
  - Headache [None]
  - Pallor [None]
  - Insomnia [None]
  - Heart rate decreased [None]
  - Dizziness [None]
  - Rash [None]
  - Dyspnoea [None]
  - Feeling abnormal [None]
  - Joint crepitation [None]
  - Restlessness [None]
  - Anxiety [None]
  - Agitation [None]
  - Gingival bleeding [None]

NARRATIVE: CASE EVENT DATE: 20141017
